FAERS Safety Report 6869170-X (Version None)
Quarter: 2010Q3

REPORT INFORMATION
  Report Type: 
  Country: None (occurrence: None)
  Receive Date: 20100722
  Receipt Date: 20080701
  Transmission Date: 20110219
  Serious: No
  Sender: FDA-Public Use
  Company Number: US-PFIZER INC-2008056291

PATIENT
  Age: 70 Year
  Sex: Female

DRUGS (8)
  1. CHANTIX [Suspect]
     Indication: SMOKING CESSATION THERAPY
     Dates: start: 20080601
  2. METFORMIN [Concomitant]
  3. FERROUS SULFATE [Concomitant]
  4. IBUPROFEN [Concomitant]
  5. VITAMIN C [Concomitant]
  6. OMEPRAZOLE [Concomitant]
     Indication: ABDOMINAL DISCOMFORT
  7. CALCIUM [Concomitant]
  8. GABAPENTIN [Concomitant]

REACTIONS (6)
  - ARTHRALGIA [None]
  - ASTHENIA [None]
  - DRUG DOSE OMISSION [None]
  - HEADACHE [None]
  - NAUSEA [None]
  - VOMITING [None]
